FAERS Safety Report 7293434-1 (Version None)
Quarter: 2011Q1

REPORT INFORMATION
  Report Type: 
  Country: None (occurrence: None)
  Receive Date: 20110215
  Receipt Date: 20110201
  Transmission Date: 20110831
  Serious: Yes (Disabling, Other)
  Sender: FDA-Public Use
  Company Number: US-BAYER-2010-005410

PATIENT
  Sex: Female

DRUGS (12)
  1. NEXAVAR [Suspect]
     Dosage: 400 MG, BID
     Route: 048
     Dates: start: 20101105, end: 20110101
  2. METFORMIN HCL [Concomitant]
     Dosage: 500 MG, UNK
  3. GLIPIZIDE [Concomitant]
     Dosage: 5 MG, UNK
  4. BENICAR [Concomitant]
     Dosage: 20/12.5 MG
  5. SYNTHROID [Concomitant]
     Dosage: 88 MICROGRAMS, UNK
  6. WARFARIN [Concomitant]
     Dosage: 6 MG, UNK
  7. HYDROCODONE BITARTRATE AND ACETAMINOPHEN [Concomitant]
     Dosage: 5/500MG
     Dates: start: 20110101
  8. WARFARIN [Concomitant]
     Dosage: 6 MG, UNK
  9. ACTOS [Concomitant]
     Dosage: 45 MG, UNK
  10. NEXAVAR [Suspect]
     Indication: THYROID CANCER
     Dosage: 400 MG, BID
     Route: 048
     Dates: start: 20100308
  11. LEVEMIR [Concomitant]
     Dosage: 50 ML, UNK
     Dates: start: 20101201
  12. SYNTHROID [Concomitant]
     Dosage: 100 ?G, UNK

REACTIONS (14)
  - BLOOD GLUCOSE INCREASED [None]
  - STOMATITIS [None]
  - BURNING SENSATION [None]
  - FATIGUE [None]
  - ORAL DISCOMFORT [None]
  - OEDEMA PERIPHERAL [None]
  - EYE DISORDER [None]
  - WHEELCHAIR USER [None]
  - DIARRHOEA [None]
  - DECUBITUS ULCER [None]
  - JOINT INJURY [None]
  - CONSTIPATION [None]
  - BLISTER [None]
  - DYSPNOEA [None]
